FAERS Safety Report 13088391 (Version 2)
Quarter: 2017Q1

REPORT INFORMATION
  Report Type: Spontaneous
  Country: IT (occurrence: IT)
  Receive Date: 20170105
  Receipt Date: 20170118
  Transmission Date: 20170428
  Serious: Yes (Other)
  Sender: FDA-Public Use
  Company Number: IT-PFIZER INC-2017003055

PATIENT
  Age: 44 Year
  Sex: Male
  Weight: 84 kg

DRUGS (2)
  1. PANTORC [Suspect]
     Active Substance: PANTOPRAZOLE SODIUM
     Indication: CHEST PAIN
     Dosage: 40 MG, UNK
     Route: 042
     Dates: start: 20161225, end: 20161225
  2. FLECTADOL /00002703/ [Suspect]
     Active Substance: ASPIRIN DL-LYSINE
     Indication: CHEST PAIN
     Dosage: 250 MG, UNK
     Route: 042
     Dates: start: 20161225, end: 20161225

REACTIONS (2)
  - Dyspnoea [Recovering/Resolving]
  - Urticaria [Recovering/Resolving]

NARRATIVE: CASE EVENT DATE: 20161225
